FAERS Safety Report 14479007 (Version 1)
Quarter: 2018Q1

REPORT INFORMATION
  Report Type: Spontaneous
  Country: FR (occurrence: FR)
  Receive Date: 20180202
  Receipt Date: 20180202
  Transmission Date: 20180509
  Serious: Yes (Hospitalization)
  Sender: FDA-Public Use
  Company Number: FR-MERCK KGAA-2041256

PATIENT
  Sex: Female

DRUGS (3)
  1. L-THYROXINE [Suspect]
     Active Substance: LEVOTHYROXINE
  2. NOVOTHYROX [Suspect]
     Active Substance: LEVOTHYROXINE SODIUM
     Indication: POST PROCEDURAL HYPOTHYROIDISM
     Dates: start: 2003
  3. L-THYROXINE [Suspect]
     Active Substance: LEVOTHYROXINE

REACTIONS (6)
  - Diarrhoea [None]
  - Psoriasis [None]
  - Hypothyroidism [None]
  - Tachycardia [None]
  - Syncope [None]
  - Vomiting [None]

NARRATIVE: CASE EVENT DATE: 201706
